FAERS Safety Report 9649061 (Version 2)
Quarter: 2014Q1

REPORT INFORMATION
  Report Type: Spontaneous
  Country: US (occurrence: None)
  Receive Date: 20131018
  Receipt Date: 20140122
  Transmission Date: 20141002
  Serious: No
  Sender: FDA-Public Use
  Company Number: AEGR000123

PATIENT
  Age: 32 Year
  Sex: Male
  Weight: 75.7 kg

DRUGS (9)
  1. JUXTAPID [Suspect]
     Indication: TYPE IIA HYPERLIPIDAEMIA
     Route: 048
     Dates: start: 20130423
  2. COUMADIN (COUMADIN) [Concomitant]
  3. CRESTOR (ROSUVASTATIN CALCIUM) [Concomitant]
  4. WELCHOL (COLESEVELAM HYDROCHLORIDE) (625 MILLIGRAM, TABLET) (COLESEVELAM HYDROCHLORIDE) [Concomitant]
  5. TOPROL (METOPROLOL SUCCINATE) [Concomitant]
  6. CHLORHEXIDINE (CHLORHEXIDINE DIACETATE) [Concomitant]
  7. VIT C (ASCORBIC ACID, CALCIUM) [Concomitant]
  8. CO Q 10 (UBIDECARENONE) [Concomitant]
  9. MAGNESIUM (ALUMINUM HYDROXIDE, MAGNESIUM HYDROXIDE) [Concomitant]

REACTIONS (1)
  - Weight decreased [None]
